FAERS Safety Report 9407360 (Version 1)
Quarter: 2013Q3

REPORT INFORMATION
  Report Type: Spontaneous
  Country: GB (occurrence: GB)
  Receive Date: 20130718
  Receipt Date: 20130718
  Transmission Date: 20140515
  Serious: Yes (Other)
  Sender: FDA-Public Use
  Company Number: GB-PFIZER INC-2013205662

PATIENT
  Age: 33 Year
  Sex: Female

DRUGS (1)
  1. DOXYCYCLINE MONOHYDRATE [Suspect]
     Indication: ACNE
     Dosage: 100 MG, 1X/DAY
     Route: 048
     Dates: start: 20130305, end: 20130315

REACTIONS (1)
  - Suicidal ideation [Recovered/Resolved]
